FAERS Safety Report 6928398-0 (Version None)
Quarter: 2010Q3

REPORT INFORMATION
  Report Type: 
  Country: None (occurrence: None)
  Receive Date: 20100810
  Receipt Date: 20100726
  Transmission Date: 20110219
  Serious: Yes (Life-Threatening, Hospitalization, Other)
  Sender: FDA-Public Use
  Company Number: 2010AC000304

PATIENT
  Age: 72 Year
  Sex: Female

DRUGS (25)
  1. DIGOXIN [Suspect]
     Dosage: PO
     Route: 048
     Dates: start: 20060301, end: 20080601
  2. DIGOXIN [Suspect]
     Indication: ATRIAL FIBRILLATION
     Dosage: 0.125 MG;QD;PO
     Route: 048
     Dates: start: 20080403, end: 20080509
  3. DIGOXIN [Suspect]
     Indication: ATRIAL FIBRILLATION
     Dosage: 0.125 MG;QOD;PO
     Route: 048
     Dates: start: 20080513
  4. ACTOS [Concomitant]
  5. CALTRATE [Concomitant]
  6. COUMADIN [Concomitant]
  7. PREMARIN [Concomitant]
  8. SOTALOL HCL [Concomitant]
  9. K-DUR [Concomitant]
  10. ALDACTONE [Concomitant]
  11. CYMBALTA [Concomitant]
  12. FEOSOL [Concomitant]
  13. BUMEX [Concomitant]
  14. LISINOPRIL [Concomitant]
  15. COLACE [Concomitant]
  16. PROTONIX [Concomitant]
  17. CLONAZEPAM [Concomitant]
  18. AMITRIPTYLINE HCL [Concomitant]
  19. ZOCOR [Concomitant]
  20. ALBUTEROL SULATE [Concomitant]
  21. BONIVA [Concomitant]
  22. BENICAR [Concomitant]
  23. PERCOCET [Concomitant]
  24. CARAFATE [Concomitant]
  25. BACTRIM DS [Concomitant]

REACTIONS (14)
  - ANAEMIA [None]
  - ANXIETY [None]
  - CARDIAC DISORDER [None]
  - COAGULOPATHY [None]
  - DRUG DISPENSING ERROR [None]
  - ECONOMIC PROBLEM [None]
  - HAEMORRHAGE [None]
  - HYPERKALAEMIA [None]
  - INTERNATIONAL NORMALISED RATIO INCREASED [None]
  - MULTIPLE INJURIES [None]
  - PAIN [None]
  - RENAL FAILURE ACUTE [None]
  - SINUS BRADYCARDIA [None]
  - THERAPEUTIC AGENT TOXICITY [None]
